FAERS Safety Report 4599473-3 (Version None)
Quarter: 2005Q1

REPORT INFORMATION
  Report Type: 
  Country: None (occurrence: None)
  Receive Date: 20050127
  Receipt Date: 20041014
  Transmission Date: 20050727
  Serious: No
  Sender: FDA-Public Use
  Company Number: USA041081262

PATIENT
  Age: 11 Year
  Sex: Male
  Weight: 42 kg

DRUGS (2)
  1. STRATTERA [Suspect]
     Indication: ATTENTION DEFICIT/HYPERACTIVITY DISORDER
     Dosage: 40 MG DAY
  2. ADDERALL 10 [Concomitant]

REACTIONS (4)
  - DECREASED APPETITE [None]
  - FATIGUE [None]
  - MALAISE [None]
  - MYDRIASIS [None]
